FAERS Safety Report 17240576 (Version 2)
Quarter: 2020Q1

REPORT INFORMATION
  Report Type: Spontaneous
  Country: CN (occurrence: CN)
  Receive Date: 20200107
  Receipt Date: 20200123
  Transmission Date: 20200409
  Serious: Yes (Life-Threatening, Hospitalization, Other)
  Sender: FDA-Public Use
  Company Number: CN-MACLEODS PHARMACEUTICALS US LTD-MAC2019024686

PATIENT

DRUGS (1)
  1. METFORMIN [Suspect]
     Active Substance: METFORMIN HYDROCHLORIDE
     Indication: SUICIDE ATTEMPT
     Dosage: UNK
     Route: 048
     Dates: start: 201905

REACTIONS (8)
  - Musculoskeletal stiffness [Unknown]
  - Eye disorder [Unknown]
  - Coma [Not Recovered/Not Resolved]
  - Urinary incontinence [Unknown]
  - Right hemisphere deficit syndrome [Unknown]
  - Hypoglycaemic encephalopathy [Not Recovered/Not Resolved]
  - Intentional overdose [Unknown]
  - Nervous system disorder [Unknown]

NARRATIVE: CASE EVENT DATE: 20190504
